APPROVED DRUG PRODUCT: NEXPLANON
Active Ingredient: ETONOGESTREL
Strength: 68MG/IMPLANT
Dosage Form/Route: IMPLANT;IMPLANTATION
Application: N021529 | Product #002
Applicant: ORGANON USA LLC
Approved: May 13, 2011 | RLD: Yes | RS: Yes | Type: RX

PATENTS:
Patent 9757552 | Expires: Jul 28, 2030
Patent 10821277 | Expires: May 31, 2027
Patent 8888745 | Expires: Aug 28, 2026
Patent 8722037 | Expires: Sep 28, 2027